FAERS Safety Report 8153054-3 (Version None)
Quarter: 2012Q1

REPORT INFORMATION
  Report Type: 
  Country: None (occurrence: None)
  Receive Date: 20120221
  Receipt Date: 20120208
  Transmission Date: 20120608
  Serious: Yes (Death)
  Sender: FDA-Public Use
  Company Number: NL-PFIZER INC-2012038060

PATIENT
  Age: 48 Year
  Sex: Female

DRUGS (3)
  1. VORICONAZOLE [Suspect]
     Indication: ASPERGILLOMA
  2. ITRACONAZOLE [Suspect]
     Indication: ASPERGILLOMA
     Dosage: UNK
     Dates: start: 20080101
  3. VORICONAZOLE [Suspect]
     Indication: ASPERGILLOMA

REACTIONS (2)
  - DRUG RESISTANCE [None]
  - UROSEPSIS [None]
